FAERS Safety Report 4802369-2 (Version None)
Quarter: 2005Q4

REPORT INFORMATION
  Report Type: 
  Country: None (occurrence: None)
  Receive Date: 20051012
  Receipt Date: 20050929
  Transmission Date: 20060501
  Serious: Yes (Hospitalization)
  Sender: FDA-Public Use
  Company Number: 2005-133300-NL

PATIENT
  Age: 69 Year
  Sex: Male

DRUGS (9)
  1. DANAPAROID [Suspect]
     Indication: ANTICOAGULANT THERAPY
     Dosage: SEE IMAGE
     Route: 042
  2. .... [Suspect]
  3. METOPROLOL [Concomitant]
  4. RANITIDINE [Concomitant]
  5. DIAZEPAM [Concomitant]
  6. GLYCERYL TRINITRATE [Suspect]
     Route: 042
  7. HEPARIN [Suspect]
     Dosage: 25000 IU QD
  8. ILOPROST [Suspect]
     Dosage: 50 UG
  9. ACENOCOUMAROL [Suspect]
     Dosage: DF

REACTIONS (6)
  - HEPARIN-INDUCED THROMBOCYTOPENIA [None]
  - PERIPHERAL ISCHAEMIA [None]
  - PNEUMONIA [None]
  - PULSE ABSENT [None]
  - THROMBOSIS [None]
  - WHITE CLOT SYNDROME [None]
